FAERS Safety Report 9204599 (Version 1)
Quarter: 2013Q1

REPORT INFORMATION
  Report Type: Spontaneous
  Country: US (occurrence: None)
  Receive Date: 20120709
  Receipt Date: 20120709
  Transmission Date: 20140127
  Serious: Yes (Life-Threatening)
  Sender: FDA-Public Use
  Company Number: PHHY2011US43715

PATIENT
  Age: 64 Year
  Sex: Male
  Weight: 40.1 kg

DRUGS (1)
  1. GLEEVEC [Suspect]
     Indication: GASTROINTESTINAL STROMAL TUMOUR
     Route: 048
     Dates: start: 20090128

REACTIONS (2)
  - Gastrointestinal haemorrhage [None]
  - Haematochezia [None]
